FAERS Safety Report 4954721-2 (Version None)
Quarter: 2006Q1

REPORT INFORMATION
  Report Type: 
  Country: None (occurrence: None)
  Receive Date: 20060322
  Receipt Date: 20060313
  Transmission Date: 20060701
  Serious: Yes (Life-Threatening, Hospitalization)
  Sender: FDA-Public Use
  Company Number: 200610178BVD

PATIENT
  Age: 37 Year
  Sex: Male
  Weight: 75 kg

DRUGS (5)
  1. SORAFENIB [Suspect]
     Indication: METASTATIC RENAL CELL CARCINOMA
     Dosage: 400 MG, BID, ORAL
     Route: 048
     Dates: start: 20050530
  2. PANTOZOL [Concomitant]
  3. FERRO ^SANOL^ [Concomitant]
  4. PALLADON [Concomitant]
  5. MARCUMAR [Concomitant]

REACTIONS (3)
  - DUODENAL ULCER [None]
  - IMPAIRED HEALING [None]
  - SMALL INTESTINE CARCINOMA [None]
